FAERS Safety Report 19123735 (Version 1)
Quarter: 2021Q2

REPORT INFORMATION
  Report Type: Spontaneous
  Country: HR (occurrence: HR)
  Receive Date: 20210412
  Receipt Date: 20210412
  Transmission Date: 20210717
  Serious: Yes (Other)
  Sender: FDA-Public Use
  Company Number: HR-ABBVIE-21K-216-3854310-00

PATIENT
  Age: 21 Year
  Sex: Male
  Weight: 58 kg

DRUGS (1)
  1. HUMIRA [Suspect]
     Active Substance: ADALIMUMAB
     Indication: CROHN^S DISEASE
     Dosage: 40 MG; EVERY WEEKS
     Route: 058
     Dates: start: 201902, end: 202103

REACTIONS (3)
  - Drug ineffective [Unknown]
  - Crohn^s disease [Recovered/Resolved]
  - Endoscopy abnormal [Recovered/Resolved]

NARRATIVE: CASE EVENT DATE: 201902
